FAERS Safety Report 5005262-8 (Version None)
Quarter: 2006Q2

REPORT INFORMATION
  Report Type: 
  Country: None (occurrence: None)
  Receive Date: 20060518
  Receipt Date: 20060427
  Transmission Date: 20061013
  Serious: Yes (Hospitalization)
  Sender: FDA-Public Use
  Company Number: 3378

PATIENT
  Age: 5 Year
  Sex: Female
  Weight: 17.4 kg

DRUGS (9)
  1. NELARABINE [Suspect]
     Dosage: 400MGM2 CYCLIC
     Route: 042
     Dates: start: 20060417
  2. MERCAPTOPURINE [Suspect]
     Dosage: 75MGM2 CYCLIC
     Route: 048
     Dates: start: 20060301
  3. METHOTREXATE [Suspect]
     Dosage: 20MGM2 CYCLIC
     Route: 048
     Dates: start: 20060301
  4. ZOFRAN [Concomitant]
  5. BACTRIM [Concomitant]
  6. NYSTATIN [Concomitant]
  7. DECADRON SRC [Concomitant]
  8. BENADRYL [Concomitant]
  9. MOTRIN [Concomitant]

REACTIONS (8)
  - ABDOMINAL PAIN [None]
  - ASTHENIA [None]
  - DECREASED APPETITE [None]
  - DIARRHOEA [None]
  - FATIGUE [None]
  - NODAL RHYTHM [None]
  - SINUS BRADYCARDIA [None]
  - VENTRICULAR ARRHYTHMIA [None]
